FAERS Safety Report 4390108-1 (Version None)
Quarter: 2004Q2

REPORT INFORMATION
  Report Type: 
  Country: None (occurrence: None)
  Receive Date: 20040630
  Receipt Date: 20040615
  Transmission Date: 20050107
  Serious: Yes (Hospitalization, Other)
  Sender: FDA-Public Use
  Company Number: ES-JNJFOC-20040404954

PATIENT
  Age: 50 Year
  Sex: Male

DRUGS (4)
  1. REMICADE [Suspect]
     Indication: RHEUMATOID ARTHRITIS
     Dosage: 3 MG/KG INTRAVENOUS
     Route: 042
     Dates: start: 20010401, end: 20040201
  2. METHOTREXATE [Concomitant]
  3. HYDROXYCHLOROQUINE SULFATE [Concomitant]
  4. PREDNISONE [Concomitant]

REACTIONS (13)
  - ARTERIAL HAEMORRHAGE [None]
  - BILE DUCT CANCER [None]
  - BILE DUCT OBSTRUCTION [None]
  - COMA [None]
  - HAEMODYNAMIC INSTABILITY [None]
  - HYPERCATABOLISM [None]
  - INFLAMMATION [None]
  - MALIGNANT NEOPLASM OF AMPULLA OF VATER [None]
  - PANCREATIC CARCINOMA [None]
  - PANCREATITIS ACUTE [None]
  - PANCREATITIS NECROTISING [None]
  - POST PROCEDURAL COMPLICATION [None]
  - SEPSIS [None]
